FAERS Safety Report 15694123 (Version 1)
Quarter: 2018Q4

REPORT INFORMATION
  Report Type: Spontaneous
  Country: US (occurrence: US)
  Receive Date: 20181206
  Receipt Date: 20181206
  Transmission Date: 20190205
  Serious: No
  Sender: FDA-Public Use
  Company Number: US-GLAXOSMITHKLINE-US2018219181

PATIENT
  Age: 84 Year
  Sex: Female

DRUGS (1)
  1. VOLTAREN [Suspect]
     Active Substance: DICLOFENAC SODIUM
     Indication: ARTHRITIS
     Dosage: UNK,APPLIED IT ONCE
     Route: 061
     Dates: start: 20181202

REACTIONS (2)
  - Drug interaction [Unknown]
  - Pruritus [Unknown]

NARRATIVE: CASE EVENT DATE: 20181202
